FAERS Safety Report 19229485 (Version 1)
Quarter: 2021Q2

REPORT INFORMATION
  Report Type: Report from Study
  Country: US (occurrence: US)
  Receive Date: 20210507
  Receipt Date: 20210507
  Transmission Date: 20210717
  Serious: Yes (Other)
  Sender: FDA-Public Use
  Company Number: US-AMGEN-USASL2021064883

PATIENT
  Age: 51 Year
  Sex: Female

DRUGS (1)
  1. ENBREL [Suspect]
     Active Substance: ETANERCEPT
     Indication: RHEUMATOID ARTHRITIS
     Dosage: 50 MILLIGRAM, QWK
     Route: 065
     Dates: start: 20210403

REACTIONS (8)
  - Injection site erythema [Not Recovered/Not Resolved]
  - Intestinal haemorrhage [Unknown]
  - Sinusitis [Recovered/Resolved]
  - Nasopharyngitis [Unknown]
  - Burning sensation [Unknown]
  - Injection site warmth [Not Recovered/Not Resolved]
  - Epistaxis [Recovered/Resolved]
  - Anxiety [Unknown]

NARRATIVE: CASE EVENT DATE: 202104
